FAERS Safety Report 17988197 (Version 1)
Quarter: 2020Q3

REPORT INFORMATION
  Report Type: Spontaneous
  Country: US (occurrence: US)
  Receive Date: 20200707
  Receipt Date: 20200707
  Transmission Date: 20201103
  Serious: No
  Sender: FDA-Public Use
  Company Number: US-CELGENEUS-USA-20200700556

PATIENT
  Sex: Female
  Weight: 72.64 kg

DRUGS (114)
  1. LUMIGAN [Concomitant]
     Active Substance: BIMATOPROST
     Indication: PRODUCT USED FOR UNKNOWN INDICATION
     Route: 065
  2. LISINOPRIL. [Concomitant]
     Active Substance: LISINOPRIL
     Route: 065
  3. ASPIRIN. [Concomitant]
     Active Substance: ASPIRIN
     Route: 065
  4. MULTIVITAMIN [Concomitant]
     Active Substance: VITAMINS
     Route: 065
  5. MULTIVITAMIN [Concomitant]
     Active Substance: VITAMINS
     Route: 065
  6. PRESERVISION AREDS [Concomitant]
     Active Substance: MINERALS\VITAMINS
     Indication: PRODUCT USED FOR UNKNOWN INDICATION
     Route: 065
  7. VITAMIN D [Concomitant]
     Active Substance: VITAMIN D NOS
     Route: 065
  8. ATORVASTATIN [Concomitant]
     Active Substance: ATORVASTATIN
     Indication: PRODUCT USED FOR UNKNOWN INDICATION
     Route: 065
  9. ATORVASTATIN [Concomitant]
     Active Substance: ATORVASTATIN
     Route: 065
  10. METFORMIN [Concomitant]
     Active Substance: METFORMIN HYDROCHLORIDE
     Route: 065
  11. FIRSE?MOUTHWASH BLM [Concomitant]
     Route: 065
  12. FIRSE?MOUTHWASH BLM [Concomitant]
     Route: 065
  13. DORZOLAMIDE?TIMOLOL [Concomitant]
     Active Substance: DORZOLAMIDE\TIMOLOL
     Route: 065
  14. DORZOLAMIDE?TIMOLOL [Concomitant]
     Active Substance: DORZOLAMIDE\TIMOLOL
     Route: 065
  15. LUMIGAN [Concomitant]
     Active Substance: BIMATOPROST
     Route: 065
  16. BETIMOL [Concomitant]
     Active Substance: TIMOLOL
     Route: 065
  17. BETIMOL [Concomitant]
     Active Substance: TIMOLOL
     Route: 065
  18. CALCIUM [Concomitant]
     Active Substance: CALCIUM
     Route: 065
  19. FISH OIL [Concomitant]
     Active Substance: FISH OIL
     Route: 065
  20. MULTIVITAMIN [Concomitant]
     Active Substance: VITAMINS
     Route: 065
  21. VITAMIN D [Concomitant]
     Active Substance: VITAMIN D NOS
     Route: 065
  22. ATORVASTATIN [Concomitant]
     Active Substance: ATORVASTATIN
     Route: 065
  23. ESOMEPRAZOLE. [Concomitant]
     Active Substance: ESOMEPRAZOLE MAGNESIUM
     Route: 065
  24. FENOFIBRATE. [Concomitant]
     Active Substance: FENOFIBRATE
     Route: 065
  25. FENOFIBRATE. [Concomitant]
     Active Substance: FENOFIBRATE
     Route: 065
  26. METFORMIN [Concomitant]
     Active Substance: METFORMIN HYDROCHLORIDE
     Route: 065
  27. DEXAMETHASONE. [Concomitant]
     Active Substance: DEXAMETHASONE
     Route: 065
  28. DEXAMETHASONE. [Concomitant]
     Active Substance: DEXAMETHASONE
     Route: 065
  29. FIRSE?MOUTHWASH BLM [Concomitant]
     Route: 065
  30. DORZOLAMIDE?TIMOLOL [Concomitant]
     Active Substance: DORZOLAMIDE\TIMOLOL
     Route: 065
  31. LUMIGAN [Concomitant]
     Active Substance: BIMATOPROST
     Route: 065
  32. LISINOPRIL. [Concomitant]
     Active Substance: LISINOPRIL
     Indication: PRODUCT USED FOR UNKNOWN INDICATION
     Route: 065
  33. FISH OIL [Concomitant]
     Active Substance: FISH OIL
     Route: 065
  34. PRESERVISION AREDS [Concomitant]
     Active Substance: MINERALS\VITAMINS
     Route: 065
  35. PRESERVISION AREDS [Concomitant]
     Active Substance: MINERALS\VITAMINS
     Route: 065
  36. VITAMIN D [Concomitant]
     Active Substance: VITAMIN D NOS
     Route: 065
  37. ESOMEPRAZOLE. [Concomitant]
     Active Substance: ESOMEPRAZOLE MAGNESIUM
     Route: 065
  38. BETIMOL [Concomitant]
     Active Substance: TIMOLOL
     Route: 065
  39. BETIMOL [Concomitant]
     Active Substance: TIMOLOL
     Route: 065
  40. LISINOPRIL. [Concomitant]
     Active Substance: LISINOPRIL
     Route: 065
  41. FISH OIL [Concomitant]
     Active Substance: FISH OIL
     Route: 065
  42. VITAMIN D [Concomitant]
     Active Substance: VITAMIN D NOS
     Route: 065
  43. ATORVASTATIN [Concomitant]
     Active Substance: ATORVASTATIN
     Route: 065
  44. FENOFIBRATE. [Concomitant]
     Active Substance: FENOFIBRATE
     Indication: PRODUCT USED FOR UNKNOWN INDICATION
     Route: 065
  45. FENOFIBRATE. [Concomitant]
     Active Substance: FENOFIBRATE
     Route: 065
  46. FENOFIBRATE. [Concomitant]
     Active Substance: FENOFIBRATE
     Route: 065
  47. POMALYST [Suspect]
     Active Substance: POMALIDOMIDE
     Indication: PLASMA CELL MYELOMA
     Dosage: 4 MILLIGRAM
     Route: 048
     Dates: start: 20200605
  48. POMALYST [Suspect]
     Active Substance: POMALIDOMIDE
     Dosage: DOSE DECREASED
     Route: 048
  49. DEXAMETHASONE. [Concomitant]
     Active Substance: DEXAMETHASONE
     Route: 065
  50. FIRSE?MOUTHWASH BLM [Concomitant]
     Route: 065
  51. DORZOLAMIDE?TIMOLOL [Concomitant]
     Active Substance: DORZOLAMIDE\TIMOLOL
     Indication: PRODUCT USED FOR UNKNOWN INDICATION
     Route: 065
  52. LUMIGAN [Concomitant]
     Active Substance: BIMATOPROST
     Route: 065
  53. LUMIGAN [Concomitant]
     Active Substance: BIMATOPROST
     Route: 065
  54. BETIMOL [Concomitant]
     Active Substance: TIMOLOL
     Indication: PRODUCT USED FOR UNKNOWN INDICATION
     Route: 065
  55. BETIMOL [Concomitant]
     Active Substance: TIMOLOL
     Route: 065
  56. LISINOPRIL. [Concomitant]
     Active Substance: LISINOPRIL
     Route: 065
  57. LISINOPRIL. [Concomitant]
     Active Substance: LISINOPRIL
     Route: 065
  58. CALCIUM [Concomitant]
     Active Substance: CALCIUM
     Route: 065
  59. CALCIUM [Concomitant]
     Active Substance: CALCIUM
     Route: 065
  60. FISH OIL [Concomitant]
     Active Substance: FISH OIL
     Indication: PRODUCT USED FOR UNKNOWN INDICATION
     Route: 065
  61. FISH OIL [Concomitant]
     Active Substance: FISH OIL
     Route: 065
  62. MULTIVITAMIN [Concomitant]
     Active Substance: VITAMINS
     Indication: PRODUCT USED FOR UNKNOWN INDICATION
     Route: 065
  63. MULTIVITAMIN [Concomitant]
     Active Substance: VITAMINS
     Route: 065
  64. VITAMIN D [Concomitant]
     Active Substance: VITAMIN D NOS
     Indication: PRODUCT USED FOR UNKNOWN INDICATION
     Route: 065
  65. VITAMIN D [Concomitant]
     Active Substance: VITAMIN D NOS
     Route: 065
  66. VITAMIN D [Concomitant]
     Active Substance: VITAMIN D NOS
     Route: 065
  67. ESOMEPRAZOLE. [Concomitant]
     Active Substance: ESOMEPRAZOLE MAGNESIUM
     Route: 065
  68. FENOFIBRATE. [Concomitant]
     Active Substance: FENOFIBRATE
     Route: 065
  69. METFORMIN [Concomitant]
     Active Substance: METFORMIN HYDROCHLORIDE
     Indication: PRODUCT USED FOR UNKNOWN INDICATION
     Route: 065
  70. METFORMIN [Concomitant]
     Active Substance: METFORMIN HYDROCHLORIDE
     Route: 065
  71. DEXAMETHASONE. [Concomitant]
     Active Substance: DEXAMETHASONE
     Route: 065
  72. FIRSE?MOUTHWASH BLM [Concomitant]
     Indication: PRODUCT USED FOR UNKNOWN INDICATION
     Route: 065
  73. FIRSE?MOUTHWASH BLM [Concomitant]
     Route: 065
  74. DORZOLAMIDE?TIMOLOL [Concomitant]
     Active Substance: DORZOLAMIDE\TIMOLOL
     Route: 065
  75. LISINOPRIL. [Concomitant]
     Active Substance: LISINOPRIL
     Route: 065
  76. LISINOPRIL. [Concomitant]
     Active Substance: LISINOPRIL
     Route: 065
  77. ASPIRIN. [Concomitant]
     Active Substance: ASPIRIN
     Route: 065
  78. CALCIUM [Concomitant]
     Active Substance: CALCIUM
     Route: 065
  79. CALCIUM [Concomitant]
     Active Substance: CALCIUM
     Route: 065
  80. CALCIUM [Concomitant]
     Active Substance: CALCIUM
     Route: 065
  81. FISH OIL [Concomitant]
     Active Substance: FISH OIL
     Route: 065
  82. FISH OIL [Concomitant]
     Active Substance: FISH OIL
     Route: 065
  83. MULTIVITAMIN [Concomitant]
     Active Substance: VITAMINS
     Route: 065
  84. PRESERVISION AREDS [Concomitant]
     Active Substance: MINERALS\VITAMINS
     Route: 065
  85. ESOMEPRAZOLE. [Concomitant]
     Active Substance: ESOMEPRAZOLE MAGNESIUM
     Route: 065
  86. ESOMEPRAZOLE. [Concomitant]
     Active Substance: ESOMEPRAZOLE MAGNESIUM
     Route: 065
  87. METFORMIN [Concomitant]
     Active Substance: METFORMIN HYDROCHLORIDE
     Route: 065
  88. DEXAMETHASONE. [Concomitant]
     Active Substance: DEXAMETHASONE
     Indication: PRODUCT USED FOR UNKNOWN INDICATION
     Route: 065
  89. FIRSE?MOUTHWASH BLM [Concomitant]
     Route: 065
  90. DORZOLAMIDE?TIMOLOL [Concomitant]
     Active Substance: DORZOLAMIDE\TIMOLOL
     Route: 065
  91. DORZOLAMIDE?TIMOLOL [Concomitant]
     Active Substance: DORZOLAMIDE\TIMOLOL
     Route: 065
  92. LUMIGAN [Concomitant]
     Active Substance: BIMATOPROST
     Route: 065
  93. ASPIRIN. [Concomitant]
     Active Substance: ASPIRIN
     Indication: PRODUCT USED FOR UNKNOWN INDICATION
     Route: 065
  94. ASPIRIN. [Concomitant]
     Active Substance: ASPIRIN
     Route: 065
  95. ASPIRIN. [Concomitant]
     Active Substance: ASPIRIN
     Route: 065
  96. ASPIRIN. [Concomitant]
     Active Substance: ASPIRIN
     Route: 065
  97. CALCIUM [Concomitant]
     Active Substance: CALCIUM
     Indication: PRODUCT USED FOR UNKNOWN INDICATION
     Route: 065
  98. MULTIVITAMIN [Concomitant]
     Active Substance: VITAMINS
     Route: 065
  99. PRESERVISION AREDS [Concomitant]
     Active Substance: MINERALS\VITAMINS
     Route: 065
  100. PRESERVISION AREDS [Concomitant]
     Active Substance: MINERALS\VITAMINS
     Route: 065
  101. ESOMEPRAZOLE. [Concomitant]
     Active Substance: ESOMEPRAZOLE MAGNESIUM
     Indication: PRODUCT USED FOR UNKNOWN INDICATION
     Route: 065
  102. METFORMIN [Concomitant]
     Active Substance: METFORMIN HYDROCHLORIDE
     Route: 065
  103. METFORMIN [Concomitant]
     Active Substance: METFORMIN HYDROCHLORIDE
     Route: 065
  104. DEXAMETHASONE. [Concomitant]
     Active Substance: DEXAMETHASONE
     Route: 065
  105. DEXAMETHASONE. [Concomitant]
     Active Substance: DEXAMETHASONE
     Route: 065
  106. LUMIGAN [Concomitant]
     Active Substance: BIMATOPROST
     Route: 065
  107. BETIMOL [Concomitant]
     Active Substance: TIMOLOL
     Route: 065
  108. ASPIRIN. [Concomitant]
     Active Substance: ASPIRIN
     Route: 065
  109. PRESERVISION AREDS [Concomitant]
     Active Substance: MINERALS\VITAMINS
     Route: 065
  110. ATORVASTATIN [Concomitant]
     Active Substance: ATORVASTATIN
     Route: 065
  111. ATORVASTATIN [Concomitant]
     Active Substance: ATORVASTATIN
     Route: 065
  112. ATORVASTATIN [Concomitant]
     Active Substance: ATORVASTATIN
     Route: 065
  113. ESOMEPRAZOLE. [Concomitant]
     Active Substance: ESOMEPRAZOLE MAGNESIUM
     Route: 065
  114. FENOFIBRATE. [Concomitant]
     Active Substance: FENOFIBRATE
     Route: 065

REACTIONS (1)
  - Adverse drug reaction [Unknown]

NARRATIVE: CASE EVENT DATE: 2020
